FAERS Safety Report 24007306 (Version 2)
Quarter: 2024Q3

REPORT INFORMATION
  Report Type: Spontaneous
  Country: GR (occurrence: GR)
  Receive Date: 20240624
  Receipt Date: 20240722
  Transmission Date: 20241017
  Serious: Yes (Other)
  Sender: MERCK
  Company Number: GR-009507513-2406GRC001329

PATIENT
  Age: 47 Year
  Sex: Female

DRUGS (2)
  1. KEYTRUDA [Suspect]
     Active Substance: PEMBROLIZUMAB
     Indication: Laryngeal cancer
     Dosage: 400 MILLIGRAM, CYCLICAL
     Dates: start: 202405, end: 202405
  2. KEYTRUDA [Suspect]
     Active Substance: PEMBROLIZUMAB
     Indication: Neoplasm malignant

REACTIONS (1)
  - Vocal cord paralysis [Recovering/Resolving]

NARRATIVE: CASE EVENT DATE: 20240501
